FAERS Safety Report 18851908 (Version 2)
Quarter: 2021Q1

REPORT INFORMATION
  Report Type: Spontaneous
  Country: US (occurrence: US)
  Receive Date: 20210205
  Receipt Date: 20210205
  Transmission Date: 20210420
  Serious: Yes (Hospitalization, Other)
  Sender: FDA-Public Use
  Company Number: US-SA-2021SA030849

PATIENT
  Age: 58 Year
  Sex: Female

DRUGS (4)
  1. LEMTRADA [Suspect]
     Active Substance: ALEMTUZUMAB
     Indication: MULTIPLE SCLEROSIS
     Dosage: DRUG STRUCTURE DOSAGE : 12 MG DRUG INTERVAL DOSAGE : DAILY X 3 DOSES DRUG TREATMENT DURATION: NA
     Dates: start: 20190225, end: 20190227
  2. LEMTRADA [Suspect]
     Active Substance: ALEMTUZUMAB
     Dosage: DRUG STRUCTURE DOSAGE : 12 MG DRUG INTERVAL DOSAGE : DAILY X 3 DOSES DRUG TREATMENT DURATION: NA
     Dates: start: 2018
  3. OCRELIZUMAB. [Suspect]
     Active Substance: OCRELIZUMAB
     Indication: MULTIPLE SCLEROSIS
     Dosage: UNK
     Dates: start: 2020
  4. NOVANTRONE [Concomitant]
     Active Substance: MITOXANTRONE HYDROCHLORIDE
     Indication: MULTIPLE SCLEROSIS

REACTIONS (2)
  - Immune thrombocytopenia [Not Recovered/Not Resolved]
  - Haemolytic anaemia [Not Recovered/Not Resolved]

NARRATIVE: CASE EVENT DATE: 202012
